FAERS Safety Report 8916096 (Version 5)
Quarter: 2013Q4

REPORT INFORMATION
  Report Type: Report from Study
  Country: JP (occurrence: JP)
  Receive Date: 20121120
  Receipt Date: 20131122
  Transmission Date: 20140711
  Serious: Yes (Hospitalization, Other)
  Sender: FDA-Public Use
  Company Number: PHHY2012JP060188

PATIENT
  Age: 57 Year
  Sex: Male
  Weight: 53 kg

DRUGS (36)
  1. LEPONEX / CLOZARIL [Suspect]
     Indication: SCHIZOPHRENIA, DISORGANISED TYPE
     Dosage: 12.5 MG, DAILY
     Route: 048
     Dates: start: 20110621, end: 20110621
  2. LEPONEX / CLOZARIL [Suspect]
     Dosage: 25 MG, DAILY
     Route: 048
     Dates: start: 20110622, end: 20110624
  3. LEPONEX / CLOZARIL [Suspect]
     Dosage: 50 MG, DAILY
     Route: 048
     Dates: start: 20110625, end: 20110627
  4. LEPONEX / CLOZARIL [Suspect]
     Dosage: 75 MG, DAILY
     Route: 048
     Dates: start: 20110628, end: 20110629
  5. LEPONEX / CLOZARIL [Suspect]
     Dosage: 100 MG, DAILY
     Route: 048
     Dates: start: 20110630, end: 20110701
  6. LEPONEX / CLOZARIL [Suspect]
     Dosage: 125 MG, DAILY
     Route: 048
     Dates: start: 20110702, end: 20110705
  7. LEPONEX / CLOZARIL [Suspect]
     Dosage: 150 MG,DAILY
     Route: 048
     Dates: start: 20110706, end: 20110708
  8. LEPONEX / CLOZARIL [Suspect]
     Dosage: 175 MG, DAILY
     Route: 048
     Dates: start: 20110709, end: 20110712
  9. LEPONEX / CLOZARIL [Suspect]
     Dosage: 200 MG, DAILY
     Route: 048
     Dates: start: 20110713, end: 20110717
  10. LEPONEX / CLOZARIL [Suspect]
     Dosage: 250 MG, DAILY
     Route: 048
     Dates: start: 20110718, end: 20110722
  11. LEPONEX / CLOZARIL [Suspect]
     Dosage: 300 MG, DAILY
     Route: 048
     Dates: start: 20110723, end: 20110728
  12. LEPONEX / CLOZARIL [Suspect]
     Dosage: 400 MG, DAILY
     Route: 048
     Dates: start: 20110729, end: 20110809
  13. LEPONEX / CLOZARIL [Suspect]
     Dosage: 500 MG, DAILY
     Route: 048
     Dates: start: 20110810, end: 20110816
  14. LEPONEX / CLOZARIL [Suspect]
     Dosage: 600 MG, DAILY
     Route: 048
     Dates: start: 20110817, end: 20110830
  15. LEPONEX / CLOZARIL [Suspect]
     Dosage: 500 MG, DAILY
     Route: 048
     Dates: start: 20110831, end: 20120414
  16. LEPONEX / CLOZARIL [Suspect]
     Dosage: 550 MG, DAILY
     Route: 048
     Dates: start: 20120419, end: 20120502
  17. LEPONEX / CLOZARIL [Suspect]
     Dosage: 600 MG, DAILY
     Route: 048
     Dates: start: 20120503, end: 20120711
  18. LEPONEX / CLOZARIL [Suspect]
     Dosage: 500 MG, DAILY
     Route: 048
     Dates: start: 20120712, end: 20120725
  19. LEPONEX / CLOZARIL [Suspect]
     Dosage: 400 MG, DAILY
     Route: 048
     Dates: start: 20120726, end: 20121109
  20. HALOPERIDOL [Suspect]
     Dosage: 20 MG, DAILY
     Route: 048
     Dates: start: 20110621, end: 20110712
  21. HALOPERIDOL [Suspect]
     Dosage: 12 MG, DAILY
     Route: 048
     Dates: start: 20110713, end: 20110719
  22. HALOPERIDOL [Suspect]
     Dosage: 4 MG, DAILY
     Route: 048
     Dates: start: 20110720, end: 20110726
  23. HALOPERIDOL [Suspect]
     Dosage: 12 MG, DAILY
     Route: 048
     Dates: start: 20110727, end: 20110816
  24. HALOPERIDOL [Suspect]
     Dosage: 6 MG, DAILY
     Route: 048
     Dates: start: 20110817, end: 20110818
  25. HALOPERIDOL [Suspect]
     Dosage: 12 MG, DAILY
     Route: 048
     Dates: start: 20110819, end: 20110830
  26. HALOPERIDOL [Suspect]
     Dosage: 20 MG, DAILY
     Route: 048
     Dates: start: 20110831, end: 20110921
  27. HALOPERIDOL [Suspect]
     Dosage: 21 MG, DAILY
     Route: 048
     Dates: start: 20111222, end: 20120418
  28. HALOPERIDOL [Suspect]
     Dosage: 18 MG,DAILY
     Route: 048
     Dates: start: 20120419, end: 20120502
  29. HALOPERIDOL [Suspect]
     Dosage: 21 MG,DAILY
     Route: 048
     Dates: start: 20120503, end: 20121109
  30. ESTAZOLAM [Concomitant]
     Indication: SCHIZOPHRENIA, DISORGANISED TYPE
     Dosage: 2 MG, UNK
     Route: 048
     Dates: start: 20111222
  31. LORAZEPAM [Concomitant]
     Indication: SCHIZOPHRENIA, DISORGANISED TYPE
     Dosage: 1.5 MG, UNK
     Route: 048
     Dates: start: 20111222
  32. MAGNESIUM OXIDE [Concomitant]
     Dosage: 2000 MG, UNK
     Route: 048
     Dates: start: 20111222
  33. BIPERIDEN HYDROCHLORIDE [Concomitant]
     Dosage: 6 MG, UNK
     Dates: start: 20111222
  34. FAMOTIDINE [Concomitant]
     Dosage: 20 MG, UNK
     Route: 048
     Dates: start: 20111222
  35. MONOAMINE OXIDASE [Concomitant]
     Indication: HEPATIC FUNCTION ABNORMAL
     Dosage: 75 MG, UNK
     Route: 048
     Dates: start: 20111222, end: 20120222
  36. TRIHEXYPHENIDYL HYDROCHLORIDE [Concomitant]
     Dosage: 4 MG
     Route: 048
     Dates: start: 20120622, end: 20121109

REACTIONS (8)
  - Mallory-Weiss syndrome [Recovering/Resolving]
  - Gastrointestinal haemorrhage [Recovering/Resolving]
  - Haematemesis [Unknown]
  - Somatic hallucination [Unknown]
  - Vomiting [Unknown]
  - Hepatic function abnormal [Recovered/Resolved]
  - Pneumonia [Recovered/Resolved]
  - White blood cell count increased [Recovered/Resolved]
